FAERS Safety Report 8540123-9 (Version None)
Quarter: 2012Q3

REPORT INFORMATION
  Report Type: 
  Country: None (occurrence: None)
  Receive Date: 20120726
  Receipt Date: 20120717
  Transmission Date: 20120928
  Serious: Yes (Other)
  Sender: FDA-Public Use
  Company Number: NL-CELGENEUS-114-21880-12071738

PATIENT
  Sex: Male

DRUGS (3)
  1. DAUNORUBICIN HCL [Suspect]
     Route: 041
     Dates: start: 20111005
  2. REVLIMID [Suspect]
     Route: 048
     Dates: start: 20111006, end: 20111022
  3. CYTARABINE [Suspect]
     Route: 041
     Dates: start: 20111005

REACTIONS (1)
  - SKIN HAEMORRHAGE [None]
